FAERS Safety Report 15634100 (Version 2)
Quarter: 2018Q4

REPORT INFORMATION
  Report Type: Spontaneous
  Country: IN (occurrence: IN)
  Receive Date: 20181119
  Receipt Date: 20181119
  Transmission Date: 20190205
  Serious: Yes (Death, Other)
  Sender: FDA-Public Use
  Company Number: PHHY2018IN157297

PATIENT
  Age: 50 Year

DRUGS (3)
  1. THALIDOMIDE [Concomitant]
     Active Substance: THALIDOMIDE
     Indication: TYPE 2 LEPRA REACTION
     Dosage: 300-400 MG, QD
     Route: 065
  2. ASPIRIN. [Concomitant]
     Active Substance: ASPIRIN
     Indication: THROMBOSIS PROPHYLAXIS
     Dosage: 75 MG, QD
     Route: 065
  3. PREDNISOLONE. [Suspect]
     Active Substance: PREDNISOLONE
     Indication: TYPE 2 LEPRA REACTION
     Route: 065

REACTIONS (9)
  - Pulmonary tuberculosis [Fatal]
  - Cardiac failure congestive [Unknown]
  - Infectious pleural effusion [Fatal]
  - Hypotension [Unknown]
  - Pulmonary cavitation [Unknown]
  - Product use in unapproved indication [Unknown]
  - Blood glucose fluctuation [Unknown]
  - Septic shock [Unknown]
  - Pyrexia [Unknown]
